FAERS Safety Report 16663371 (Version 1)
Quarter: 2019Q3

REPORT INFORMATION
  Report Type: Report from Study
  Country: US (occurrence: US)
  Receive Date: 20190802
  Receipt Date: 20190802
  Transmission Date: 20191004
  Serious: No
  Sender: FDA-Public Use
  Company Number: US-EXELIXIS-CABO-19021133

PATIENT
  Sex: Male

DRUGS (2)
  1. COMETRIQ [Suspect]
     Active Substance: CABOZANTINIB S-MALATE
     Indication: CARCINOID TUMOUR
  2. COMETRIQ [Suspect]
     Active Substance: CABOZANTINIB S-MALATE
     Indication: CARCINOID TUMOUR OF THE LIVER
     Dosage: 140 MG, QD
     Route: 048
     Dates: start: 20190306

REACTIONS (3)
  - Off label use [Unknown]
  - Stomatitis [Not Recovered/Not Resolved]
  - Genital burning sensation [Recovered/Resolved]
